FAERS Safety Report 9648979 (Version 1)
Quarter: 2013Q4

REPORT INFORMATION
  Report Type: Spontaneous
  Country: FR (occurrence: FR)
  Receive Date: 20131028
  Receipt Date: 20131028
  Transmission Date: 20140711
  Serious: Yes (Hospitalization)
  Sender: FDA-Public Use
  Company Number: FR-WATSON-2013-19311

PATIENT
  Age: 51 Year
  Sex: Female

DRUGS (3)
  1. SIMVASTATIN [Suspect]
     Indication: PRODUCT USED FOR UNKNOWN INDICATION
     Dosage: 20 MG, DAILY
     Route: 048
     Dates: start: 20130713, end: 20130718
  2. LOVENOX [Suspect]
     Indication: PRODUCT USED FOR UNKNOWN INDICATION
     Dosage: UNK
     Route: 058
     Dates: start: 20130712, end: 20130722
  3. INEXIUM /01479302/ [Suspect]
     Indication: PRODUCT USED FOR UNKNOWN INDICATION
     Dosage: 20 MG, DAILY
     Route: 048
     Dates: start: 20130713, end: 20130718

REACTIONS (1)
  - Hepatitis [Recovered/Resolved]
